FAERS Safety Report 9864111 (Version 1)
Quarter: 2014Q1

REPORT INFORMATION
  Report Type: Spontaneous
  Country: US (occurrence: US)
  Receive Date: 20140203
  Receipt Date: 20140203
  Transmission Date: 20141002
  Serious: Yes (Other)
  Sender: FDA-Public Use
  Company Number: US-PFIZER INC-2014028626

PATIENT
  Sex: Female

DRUGS (3)
  1. EFFEXOR XR [Suspect]
     Dosage: UNK
  2. PREDNISONE [Suspect]
     Dosage: UNK
  3. CYMBALTA [Suspect]
     Indication: PAIN
     Dosage: UNK

REACTIONS (1)
  - Colitis microscopic [Unknown]
